FAERS Safety Report 8623710 (Version 2)
Quarter: 2014Q1

REPORT INFORMATION
  Report Type: Spontaneous
  Country: US (occurrence: None)
  Receive Date: 20120323
  Receipt Date: 20140306
  Transmission Date: 20141002
  Serious: Yes (Hospitalization, Other)
  Sender: FDA-Public Use
  Company Number: 163-21880-11063648

PATIENT
  Age: 71 Year
  Sex: Male
  Weight: 70.31 kg

DRUGS (4)
  1. REVLIMID [Suspect]
     Indication: PLASMA CELL MYELOMA
     Dosage: 15 MG, 21 IN 28 D, PO
     Route: 048
     Dates: start: 20080610, end: 20110623
  2. BABY ASPIRIN (ACETYLSALICYLIC ACID) [Concomitant]
  3. TYLENOL (PARACETAMOL) [Concomitant]
  4. ZOMETA (ZOLEDRONIC ACID) [Concomitant]

REACTIONS (3)
  - Lobar pneumonia [None]
  - Full blood count decreased [None]
  - Dental caries [None]
